FAERS Safety Report 6417058-0 (Version None)
Quarter: 2009Q4

REPORT INFORMATION
  Report Type: 
  Country: None (occurrence: None)
  Receive Date: 20091028
  Receipt Date: 20091020
  Transmission Date: 20100525
  Serious: Yes (Hospitalization)
  Sender: FDA-Public Use
  Company Number: US-BIOGENIDEC-2009BI025987

PATIENT
  Age: 69 Year
  Sex: Male

DRUGS (9)
  1. TYSABRI [Suspect]
     Indication: CROHN'S DISEASE
     Route: 042
     Dates: start: 20090220
  2. PROZAC [Concomitant]
  3. PERCOCET [Concomitant]
  4. COMBIVENT [Concomitant]
  5. GLUCOPHAGE [Concomitant]
  6. GLIPIZIDE [Concomitant]
  7. PANTOPRAZOLE [Concomitant]
  8. VENTOLIN [Concomitant]
  9. SPIRIVA [Concomitant]

REACTIONS (2)
  - LUNG DISORDER [None]
  - PLEURAL EFFUSION [None]
